FAERS Safety Report 6819907-0 (Version None)
Quarter: 2010Q3

REPORT INFORMATION
  Report Type: 
  Country: None (occurrence: None)
  Receive Date: 20100707
  Receipt Date: 20100628
  Transmission Date: 20110219
  Serious: Yes (Other)
  Sender: FDA-Public Use
  Company Number: US-ROCHE-498376

PATIENT
  Sex: Male
  Weight: 104.3 kg

DRUGS (4)
  1. PEGASYS [Suspect]
     Indication: HEPATITIS C
     Dosage: FORM: INJECTION
     Route: 065
     Dates: start: 20070301, end: 20070601
  2. COPEGUS [Suspect]
     Indication: HEPATITIS C
     Route: 048
     Dates: start: 20070301, end: 20070601
  3. TOPROL-XL [Concomitant]
  4. ASPIRIN [Concomitant]

REACTIONS (15)
  - ALOPECIA [None]
  - ARTHRALGIA [None]
  - CHRONIC OBSTRUCTIVE PULMONARY DISEASE [None]
  - CONVULSION [None]
  - DEPRESSION [None]
  - DRY SKIN [None]
  - FEELING OF BODY TEMPERATURE CHANGE [None]
  - HEPATIC CIRRHOSIS [None]
  - MYALGIA [None]
  - MYOCARDIAL INFARCTION [None]
  - NERVOUS SYSTEM DISORDER [None]
  - NEUTROPENIA [None]
  - VISION BLURRED [None]
  - VISUAL ACUITY REDUCED [None]
  - WHITE BLOOD CELL COUNT DECREASED [None]
